FAERS Safety Report 11749397 (Version 4)
Quarter: 2019Q1

REPORT INFORMATION
  Report Type: Spontaneous
  Country: US (occurrence: US)
  Receive Date: 20151118
  Receipt Date: 20190123
  Transmission Date: 20190417
  Serious: Yes (Hospitalization)
  Sender: FDA-Public Use
  Company Number: US-PFIZER INC-2015357180

PATIENT
  Age: 77 Year
  Sex: Male
  Weight: 73.47 kg

DRUGS (10)
  1. SUTENT [Suspect]
     Active Substance: SUNITINIB MALATE
     Dosage: 50 MG, CYCLIC (DAILY, 28 DAYS ON AND 14 DAYS OFF)
     Dates: start: 20121010
  2. MULTIVITAMINS /07504101/ [Concomitant]
     Active Substance: VITAMINS
     Dosage: UNK, UNK (BETWEEN MEALS)
  3. LEVOTHYROXINE. [Concomitant]
     Active Substance: LEVOTHYROXINE
     Dosage: UNK
  4. CARVEDILOL. [Concomitant]
     Active Substance: CARVEDILOL
     Dosage: UNK
     Dates: start: 20121022, end: 20121130
  5. FUROSEMIDE. [Concomitant]
     Active Substance: FUROSEMIDE
     Dosage: UNK
     Dates: start: 20120801, end: 20120901
  6. LISINOPRIL. [Concomitant]
     Active Substance: LISINOPRIL
     Dosage: 20 MG, DAILY
     Route: 048
     Dates: start: 20130215
  7. SUTENT [Suspect]
     Active Substance: SUNITINIB MALATE
     Indication: THYROID CANCER
     Dosage: 50 MG, CYCLIC (4 WK ON 2 WK OFF)
     Dates: start: 20120407
  8. HYTRIN [Concomitant]
     Active Substance: TERAZOSIN HYDROCHLORIDE
     Dosage: UNK
  9. SUTENT [Suspect]
     Active Substance: SUNITINIB MALATE
     Dosage: 50 MG, CYCLIC (DAILY, 28 DAYS ON AND 21 DAYS OFF)
  10. SUTENT [Suspect]
     Active Substance: SUNITINIB MALATE
     Dosage: 50 MG, CYCLIC (ONCE A DAY FOR 21 DAYS ON AND 21 DAYS OFF)

REACTIONS (14)
  - Thyroid function test abnormal [Not Recovered/Not Resolved]
  - Intentional product misuse [Unknown]
  - Abdominal discomfort [Unknown]
  - Erythema [Unknown]
  - Product use in unapproved indication [Not Recovered/Not Resolved]
  - Dysgeusia [Not Recovered/Not Resolved]
  - Temperature intolerance [Not Recovered/Not Resolved]
  - Feeding disorder [Unknown]
  - Nausea [Unknown]
  - Malaise [Unknown]
  - Renal disorder [Unknown]
  - Anaemia [Unknown]
  - Contusion [Unknown]
  - Dyspepsia [Unknown]

NARRATIVE: CASE EVENT DATE: 20120407
